FAERS Safety Report 9068489 (Version 1)
Quarter: 2013Q1

REPORT INFORMATION
  Report Type: Report from Study
  Country: US (occurrence: US)
  Receive Date: 20130128
  Receipt Date: 20130128
  Transmission Date: 20140127
  Serious: Yes (Other)
  Sender: FDA-Public Use
  Company Number: US-ROCHE-1183454

PATIENT
  Sex: 0

DRUGS (6)
  1. RITUXIMAB [Suspect]
     Indication: NON-HODGKIN^S LYMPHOMA
     Route: 065
  2. BENDAMUSTINE [Suspect]
     Indication: NON-HODGKIN^S LYMPHOMA
     Dosage: DAY 1AND 2
     Route: 065
  3. BENDAMUSTINE [Suspect]
     Route: 065
  4. IBRUTINIB [Suspect]
     Indication: NON-HODGKIN^S LYMPHOMA
     Dosage: DAYS 1-28 EVERY 28 DAYS FOR 6 CYCLES
     Route: 065
  5. IBRUTINIB [Suspect]
     Dosage: DAYS 1-28 EVERY 28 DAYS FOR 6 CYCLES
     Route: 065
  6. IBRUTINIB [Suspect]
     Route: 065

REACTIONS (7)
  - Neutropenia [Unknown]
  - Lymphopenia [Unknown]
  - Thrombocytopenia [Unknown]
  - Pancreatitis [Unknown]
  - Vomiting [Unknown]
  - Herpes zoster [Unknown]
  - Rash [Unknown]
